FAERS Safety Report 7649728-0 (Version None)
Quarter: 2011Q3

REPORT INFORMATION
  Report Type: 
  Country: None (occurrence: None)
  Receive Date: 20110802
  Receipt Date: 20110725
  Transmission Date: 20111222
  Serious: Yes (Hospitalization)
  Sender: FDA-Public Use
  Company Number: FR-KINGPHARMUSA00001-K201100875

PATIENT
  Age: 52 Year
  Sex: Male

DRUGS (6)
  1. ASPIRIN [Concomitant]
  2. ALDACTONE [Concomitant]
  3. POTASSIUM CHLORIDE [Concomitant]
  4. SOLIAN [Concomitant]
  5. ESOMEPRAZOLE MAGNESIUM [Concomitant]
  6. ALTACE [Suspect]
     Dosage: 10 MG, QD
     Route: 048
     Dates: end: 20110622

REACTIONS (2)
  - CARDIAC FAILURE [None]
  - ANGIOEDEMA [None]
